FAERS Safety Report 6556822-4 (Version None)
Quarter: 2010Q1

REPORT INFORMATION
  Report Type: 
  Country: None (occurrence: None)
  Receive Date: 20100128
  Receipt Date: 20100118
  Transmission Date: 20100710
  Serious: Yes (Other)
  Sender: FDA-Public Use
  Company Number: PHHY2010US00671

PATIENT
  Sex: Female
  Weight: 47.166 kg

DRUGS (9)
  1. EXELON [Suspect]
     Indication: HALLUCINATION
     Dosage: 1/2 OF 4.6 MG
     Route: 061
     Dates: start: 20090505, end: 20091231
  2. EXELON [Suspect]
     Indication: AMNESIA
  3. EXELON [Suspect]
     Indication: DEMENTIA ALZHEIMER'S TYPE
  4. LEVOXYL [Concomitant]
     Dosage: 88 MCG DAILY
     Route: 048
  5. LIPITOR [Concomitant]
     Dosage: 20 MG, BID
     Route: 048
  6. TENORMIN [Concomitant]
     Dosage: 50 MG DAILY
     Route: 048
  7. POTASSIUM [Concomitant]
     Dosage: 10 MG, DAILY
     Route: 048
  8. ASPIRIN [Concomitant]
     Indication: CARDIAC DISORDER
     Dosage: 81 MG, DAILY
     Route: 048
  9. NORVASC [Concomitant]
     Indication: BLOOD PRESSURE
     Dosage: 10 MG, DAILY
     Route: 048

REACTIONS (4)
  - DECREASED APPETITE [None]
  - NAUSEA [None]
  - WEIGHT DECREASED [None]
  - WRONG TECHNIQUE IN DRUG USAGE PROCESS [None]
